FAERS Safety Report 4280743-3 (Version None)
Quarter: 2004Q1

REPORT INFORMATION
  Report Type: 
  Country: None (occurrence: None)
  Receive Date: 20040129
  Receipt Date: 20031204
  Transmission Date: 20041129
  Serious: No
  Sender: FDA-Public Use
  Company Number: US-BRISTOL-MYERS SQUIBB COMPANY-12449849

PATIENT
  Age: 74 Year
  Sex: Male
  Weight: 73 kg

DRUGS (2)
  1. METAGLIP [Suspect]
     Indication: DIABETES MELLITUS
     Route: 048
  2. BLOOD PRESSURE MEDICATION [Concomitant]

REACTIONS (1)
  - ABDOMINAL PAIN UPPER [None]
